FAERS Safety Report 12158491 (Version 2)
Quarter: 2016Q2

REPORT INFORMATION
  Report Type: Spontaneous
  Country: US (occurrence: US)
  Receive Date: 20160308
  Receipt Date: 20160413
  Transmission Date: 20160815
  Serious: Yes (Other)
  Sender: FDA-Public Use
  Company Number: US-JNJFOC-20160225748

PATIENT
  Sex: Female

DRUGS (15)
  1. ASA [Concomitant]
     Active Substance: ASPIRIN
     Indication: CARDIOVASCULAR EVENT PROPHYLAXIS
  2. VITAMIN D3 [Concomitant]
     Active Substance: CHOLECALCIFEROL
  3. GLUCOPHAGE [Concomitant]
     Active Substance: METFORMIN HYDROCHLORIDE
     Indication: DIABETES MELLITUS
     Dosage: 500 MG
  4. MULTIVITAMINS [Concomitant]
     Active Substance: VITAMINS
  5. VITAMIN C [Concomitant]
     Active Substance: ASCORBIC ACID
     Route: 048
  6. LANTUS [Concomitant]
     Active Substance: INSULIN GLARGINE
     Indication: DIABETES MELLITUS
     Dosage: 100 U/ML
  7. AMBIEN [Concomitant]
     Active Substance: ZOLPIDEM TARTRATE
     Dosage: 5 MG, HS
  8. MYCOLOG [Concomitant]
     Active Substance: GRAMICIDIN\NEOMYCIN SULFATE\NYSTATIN\TRIAMCINOLONE ACETONIDE
     Dosage: PRN
     Route: 061
  9. IMBRUVICA [Suspect]
     Active Substance: IBRUTINIB
     Indication: CHRONIC LYMPHOCYTIC LEUKAEMIA
     Route: 048
     Dates: start: 20150220
  10. METFORMIN [Concomitant]
     Active Substance: METFORMIN HYDROCHLORIDE
     Indication: DIABETES MELLITUS
     Dosage: 500 UNK,UNK
     Route: 048
  11. ADVAIR HFA [Concomitant]
     Active Substance: FLUTICASONE PROPIONATE\SALMETEROL XINAFOATE
     Indication: CHRONIC OBSTRUCTIVE PULMONARY DISEASE
     Dosage: 100-50 MCG/DOSE, 1 PUFF, BID
  12. SENNA [Concomitant]
     Active Substance: SENNA LEAF\SENNOSIDES\SENNOSIDES A AND B
     Indication: CONSTIPATION
     Dosage: PRN
  13. NOVOLOG [Concomitant]
     Active Substance: INSULIN ASPART
     Indication: DIABETES MELLITUS
     Dosage: 1000 U/ML
  14. ALEVE [Concomitant]
     Active Substance: NAPROXEN SODIUM
     Indication: ARTHRALGIA
     Dosage: 220 MG, PRN
  15. PROBIOTICS NOS [Concomitant]
     Active Substance: PROBIOTICS NOS

REACTIONS (1)
  - Squamous cell carcinoma of skin [Recovered/Resolved]

NARRATIVE: CASE EVENT DATE: 201506
